FAERS Safety Report 10085070 (Version 1)
Quarter: 2014Q2

REPORT INFORMATION
  Report Type: Spontaneous
  Country: US (occurrence: None)
  Receive Date: 20140408
  Receipt Date: 20140408
  Transmission Date: 20141212
  Serious: Yes (Other)
  Sender: FDA-Public Use
  Company Number: 2013-01988

PATIENT
  Age: 30 Year
  Sex: Female

DRUGS (1)
  1. TOPIRAMATE (UNKNOWN) (TOPIRAMATE) [Suspect]
     Indication: MIGRAINE

REACTIONS (2)
  - Angle closure glaucoma [None]
  - Drug ineffective [None]
